FAERS Safety Report 7396402-4 (Version None)
Quarter: 2011Q1

REPORT INFORMATION
  Report Type: 
  Country: None (occurrence: None)
  Receive Date: 20110331
  Receipt Date: 20110331
  Transmission Date: 20110831
  Serious: Yes (Life-Threatening, Other)
  Sender: FDA-Public Use
  Company Number: None

PATIENT
  Age: 54 Year
  Sex: Female
  Weight: 46.4 kg

DRUGS (3)
  1. BUPROPRION HCL [Suspect]
  2. VENLAFAXINE [Suspect]
     Indication: DEPRESSION
     Dosage: 225 MG QD PO
     Route: 048
     Dates: start: 20110101
  3. VENLAFAXINE [Suspect]
     Indication: CHRONIC FATIGUE SYNDROME
     Dosage: 225 MG QD PO
     Route: 048
     Dates: start: 20110101

REACTIONS (3)
  - PRODUCT SUBSTITUTION ISSUE [None]
  - APPARENT DEATH [None]
  - SUICIDE ATTEMPT [None]
